FAERS Safety Report 4679274-8 (Version None)
Quarter: 2005Q2

REPORT INFORMATION
  Report Type: 
  Country: None (occurrence: None)
  Receive Date: 20050531
  Receipt Date: 20050531
  Transmission Date: 20051028
  Serious: Yes (Life-Threatening, Disabling)
  Sender: FDA-Public Use
  Company Number: None

PATIENT
  Sex: Female
  Weight: 112.0385 kg

DRUGS (1)
  1. SEROQUEL [Suspect]
     Indication: BLOOD CHOLESTEROL INCREASED

REACTIONS (4)
  - BLOOD CHOLESTEROL INCREASED [None]
  - CATARACT [None]
  - LOW DENSITY LIPOPROTEIN INCREASED [None]
  - NIGHT BLINDNESS [None]
